FAERS Safety Report 10003520 (Version 4)
Quarter: 2015Q2

REPORT INFORMATION
  Report Type: Spontaneous
  Country: US (occurrence: US)
  Receive Date: 20140312
  Receipt Date: 20150501
  Transmission Date: 20150821
  Serious: Yes (Hospitalization)
  Sender: FDA-Public Use
  Company Number: US-BAYER-2014-033318

PATIENT
  Age: 25 Year
  Sex: Female
  Weight: 73 kg

DRUGS (3)
  1. VICODIN [Concomitant]
     Active Substance: ACETAMINOPHEN\HYDROCODONE BITARTRATE
  2. MIRENA [Suspect]
     Active Substance: LEVONORGESTREL
     Indication: CONTRACEPTION
     Dosage: 20 MCG/24HR, CONT
     Route: 015
     Dates: start: 20100224, end: 20101208
  3. FLAGYL [Concomitant]
     Active Substance: METRONIDAZOLE\METRONIDAZOLE HYDROCHLORIDE
     Dosage: 500 MG, BID

REACTIONS (8)
  - Adnexa uteri pain [None]
  - Drug ineffective [None]
  - Pregnancy with contraceptive device [None]
  - Embedded device [None]
  - Ovarian cyst [None]
  - Injury [None]
  - Dyspareunia [None]
  - Pain [None]

NARRATIVE: CASE EVENT DATE: 2010
